FAERS Safety Report 10187394 (Version 2)
Quarter: 2014Q3

REPORT INFORMATION
  Report Type: Spontaneous
  Country: US (occurrence: None)
  Receive Date: 20140520
  Receipt Date: 20140708
  Transmission Date: 20150326
  Serious: Yes (Other)
  Sender: FDA-Public Use
  Company Number: AUR-APL-2014-05757

PATIENT
  Age: 47 Year
  Sex: Male

DRUGS (1)
  1. MINOCYCLINE [Suspect]
     Active Substance: MINOCYCLINE\MINOCYCLINE HYDROCHLORIDE
     Indication: ROSACEA

REACTIONS (11)
  - Testicular pain [None]
  - Headache [None]
  - Testicular infarction [None]
  - Night sweats [None]
  - Abdominal pain [None]
  - Myalgia [None]
  - Testicular swelling [None]
  - Pyrexia [None]
  - Antineutrophil cytoplasmic antibody positive [None]
  - Hypoaesthesia [None]
  - Vasculitis [None]
